FAERS Safety Report 25700375 (Version 1)
Quarter: 2025Q3

REPORT INFORMATION
  Report Type: Spontaneous
  Country: US (occurrence: None)
  Receive Date: 20250818
  Receipt Date: 20250818
  Transmission Date: 20251021
  Serious: Yes (Other)
  Sender: FDA-CTU
  Company Number: None

PATIENT
  Age: 68 Year
  Sex: Female

DRUGS (1)
  1. OFEV [Suspect]
     Active Substance: NINTEDANIB
     Indication: Hypersensitivity pneumonitis
     Dosage: FREQUENCY : TWICE A DAY;?
     Route: 048
     Dates: start: 20240823

REACTIONS (2)
  - Diarrhoea [None]
  - Treatment noncompliance [None]

NARRATIVE: CASE EVENT DATE: 20250818
